FAERS Safety Report 18023109 (Version 15)
Quarter: 2022Q1

REPORT INFORMATION
  Report Type: Report from Study
  Country: US (occurrence: US)
  Receive Date: 20200715
  Receipt Date: 20220217
  Transmission Date: 20220423
  Serious: Yes (Hospitalization, Other)
  Sender: FDA-Public Use
  Company Number: US-SHIRE-US202022457

PATIENT
  Sex: Female
  Weight: 97 kg

DRUGS (22)
  1. HUMAN IMMUNOGLOBULIN G [Suspect]
     Active Substance: HUMAN IMMUNOGLOBULIN G
     Indication: Hypogammaglobulinaemia
     Dosage: 5 GRAM, Q3WEEKS
     Route: 058
     Dates: start: 20190725
  2. HUMAN IMMUNOGLOBULIN G [Suspect]
     Active Substance: HUMAN IMMUNOGLOBULIN G
     Indication: Immunodeficiency common variable
     Dosage: 5 GRAM, Q4WEEKS
     Route: 058
     Dates: start: 20190725
  3. HUMAN IMMUNOGLOBULIN G [Suspect]
     Active Substance: HUMAN IMMUNOGLOBULIN G
     Dosage: 5 GRAM, Q4WEEKS
     Route: 042
  4. HUMAN IMMUNOGLOBULIN G [Suspect]
     Active Substance: HUMAN IMMUNOGLOBULIN G
     Dosage: 5 GRAM, Q6WEEKS
     Route: 058
     Dates: start: 20190725
  5. HUMAN IMMUNOGLOBULIN G [Suspect]
     Active Substance: HUMAN IMMUNOGLOBULIN G
     Dosage: 5 GRAM, Q8WEEKS
     Route: 058
     Dates: start: 20190725
  6. HUMAN IMMUNOGLOBULIN G [Suspect]
     Active Substance: HUMAN IMMUNOGLOBULIN G
     Dosage: 5 GRAM, Q8WEEKS
     Route: 058
     Dates: start: 20190725
  7. LISINOPRIL [Concomitant]
     Active Substance: LISINOPRIL
     Route: 065
  8. POTASSIUM [Concomitant]
     Active Substance: POTASSIUM
     Route: 065
  9. LASIX [Concomitant]
     Active Substance: FUROSEMIDE
     Route: 065
  10. OXYGEN [Concomitant]
     Active Substance: OXYGEN
     Route: 065
  11. SYMBICORT [Concomitant]
     Active Substance: BUDESONIDE\FORMOTEROL FUMARATE DIHYDRATE
     Route: 065
  12. ALBUTEROL [Concomitant]
     Active Substance: ALBUTEROL
     Route: 065
  13. CLARITIN-D NOS [Concomitant]
     Active Substance: LORATADINE\PSEUDOEPHEDRINE SULFATE
     Route: 065
  14. ADVAIR HFA [Concomitant]
     Active Substance: FLUTICASONE PROPIONATE\SALMETEROL XINAFOATE
     Route: 065
  15. ACETAMINOPHEN [Concomitant]
     Active Substance: ACETAMINOPHEN
     Indication: Product used for unknown indication
     Route: 065
  16. DIPHENHYDRAMINE [Concomitant]
     Active Substance: DIPHENHYDRAMINE
     Route: 065
  17. EPINEPHRINE [Concomitant]
     Active Substance: EPINEPHRINE
     Route: 065
  18. LMX [Concomitant]
     Route: 065
  19. POTASSIUM CHLORIDE [Concomitant]
     Active Substance: POTASSIUM CHLORIDE
     Route: 065
  20. ALBUTEROL SULFATE [Concomitant]
     Active Substance: ALBUTEROL SULFATE
     Route: 065
  21. TRAMADOL HCL [Concomitant]
     Active Substance: TRAMADOL HYDROCHLORIDE
     Route: 065
  22. IPRATROPIUM BROMIDE [Concomitant]
     Active Substance: IPRATROPIUM BROMIDE
     Route: 065

REACTIONS (20)
  - Localised infection [Unknown]
  - Lipoedema [Unknown]
  - Respiratory tract infection [Unknown]
  - Hiatus hernia [Unknown]
  - Abdominal mass [Unknown]
  - Blood immunoglobulin G increased [Unknown]
  - Respiratory disorder [Recovered/Resolved]
  - General physical health deterioration [Recovered/Resolved]
  - Lip oedema [Unknown]
  - Depression [Unknown]
  - Condition aggravated [Unknown]
  - Pain [Recovered/Resolved]
  - Anxiety [Unknown]
  - Pain in extremity [Unknown]
  - Pyrexia [Recovered/Resolved]
  - Oedema [Unknown]
  - Oedema peripheral [Unknown]
  - Arthralgia [Unknown]
  - Back pain [Unknown]
  - Fatigue [Recovered/Resolved]
